FAERS Safety Report 24531509 (Version 1)
Quarter: 2024Q4

REPORT INFORMATION
  Report Type: Spontaneous
  Country: RU (occurrence: RU)
  Receive Date: 20241022
  Receipt Date: 20241022
  Transmission Date: 20250115
  Serious: Yes (Hospitalization, Other)
  Sender: NOVITIUM PHARMA
  Company Number: RU-NOVITIUMPHARMA-2024RUNVP02319

PATIENT
  Age: 7 Year
  Sex: Male

DRUGS (6)
  1. LIDOCAINE HYDROCHLORIDE [Suspect]
     Active Substance: LIDOCAINE HYDROCHLORIDE
     Indication: Respiratory tract infection
     Route: 030
  2. CEFAZOLIN [Concomitant]
     Active Substance: CEFAZOLIN
     Indication: Respiratory tract infection
  3. SODIUM OXYBATE [Concomitant]
     Active Substance: SODIUM OXYBATE
     Indication: Analgesic therapy
  4. SODIUM OXYBATE [Concomitant]
     Active Substance: SODIUM OXYBATE
     Indication: Sedation
  5. FENTANYL [Concomitant]
     Active Substance: FENTANYL
     Indication: Analgesic therapy
  6. FENTANYL [Concomitant]
     Active Substance: FENTANYL
     Indication: Sedation

REACTIONS (6)
  - Dyspnoea [Recovered/Resolved]
  - Generalised tonic-clonic seizure [Unknown]
  - Multiple organ dysfunction syndrome [Unknown]
  - Medication error [Unknown]
  - Loss of consciousness [Recovered/Resolved]
  - Overdose [Unknown]
